FAERS Safety Report 11154919 (Version 1)
Quarter: 2015Q2

REPORT INFORMATION
  Report Type: Spontaneous
  Country: CR (occurrence: CR)
  Receive Date: 20150602
  Receipt Date: 20150602
  Transmission Date: 20150821
  Serious: Yes (Death, Hospitalization)
  Sender: FDA-Public Use
  Company Number: CR-ROCHE-1584519

PATIENT
  Age: 18 Year
  Sex: Male

DRUGS (1)
  1. RIVOTRIL [Suspect]
     Active Substance: CLONAZEPAM
     Indication: ANXIETY
     Dosage: 3 DROPS IN THE MORNING AND 5 DROPS IN THE AFTERNOON
     Route: 048

REACTIONS (6)
  - Seizure [Fatal]
  - Off label use [Unknown]
  - Encephalitis [Fatal]
  - Hallucination [Fatal]
  - Psychotic disorder [Fatal]
  - Fatigue [Fatal]
